FAERS Safety Report 23642410 (Version 1)
Quarter: 2024Q1

REPORT INFORMATION
  Report Type: Other
  Country: US (occurrence: None)
  Receive Date: 20240318
  Receipt Date: 20240318
  Transmission Date: 20240409
  Serious: Yes (Hospitalization)
  Sender: FDA-Public Use
  Company Number: US-ROCHE-3522855

PATIENT
  Age: 58 Year
  Sex: Female

DRUGS (1)
  1. OCREVUS [Suspect]
     Active Substance: OCRELIZUMAB
     Indication: Multiple sclerosis
     Dosage: YES
     Route: 042
     Dates: start: 2020

REACTIONS (9)
  - Pneumonia [Recovered/Resolved]
  - Pneumonia bacterial [Unknown]
  - Bronchitis [Unknown]
  - Hepatic steatosis [Unknown]
  - Cough [Not Recovered/Not Resolved]
  - Breast cyst [Recovering/Resolving]
  - Skin discolouration [Not Recovered/Not Resolved]
  - Multiple sclerosis [Unknown]
  - Chronic obstructive pulmonary disease [Unknown]

NARRATIVE: CASE EVENT DATE: 20230101
